FAERS Safety Report 24796405 (Version 1)
Quarter: 2025Q1

REPORT INFORMATION
  Report Type: Spontaneous
  Country: GB (occurrence: GB)
  Receive Date: 20250101
  Receipt Date: 20250101
  Transmission Date: 20250409
  Serious: Yes (Other)
  Sender: ACCORD
  Company Number: None

PATIENT
  Age: 64 Year
  Sex: Male

DRUGS (4)
  1. IRINOTECAN [Suspect]
     Active Substance: IRINOTECAN
     Indication: Colorectal cancer
  2. ATROPINE [Concomitant]
     Active Substance: ATROPINE
  3. ONDANSETRON [Concomitant]
     Active Substance: ONDANSETRON
  4. DEXAMETHASONE [Concomitant]
     Active Substance: DEXAMETHASONE

REACTIONS (4)
  - Fatigue [Unknown]
  - Dyspnoea [Unknown]
  - Pain [Unknown]
  - Vertebral column mass [Unknown]

NARRATIVE: CASE EVENT DATE: 20241218
